FAERS Safety Report 18507160 (Version 1)
Quarter: 2020Q4

REPORT INFORMATION
  Report Type: Spontaneous
  Country: US (occurrence: US)
  Receive Date: 20201113
  Receipt Date: 20201113
  Transmission Date: 20210114
  Serious: Yes (Death)
  Sender: FDA-Public Use
  Company Number: None

PATIENT
  Age: 62 Year
  Sex: Female

DRUGS (1)
  1. POMALYST [Suspect]
     Active Substance: POMALIDOMIDE
     Indication: PLASMA CELL MYELOMA
     Route: 048
     Dates: start: 20190715, end: 20200920

REACTIONS (8)
  - Pathological fracture [None]
  - Muscular weakness [None]
  - Hypoaesthesia [None]
  - White blood cell count increased [None]
  - Infection [None]
  - Acute myocardial infarction [None]
  - Oxygen saturation decreased [None]
  - Post procedural complication [None]

NARRATIVE: CASE EVENT DATE: 20201017
